FAERS Safety Report 7276009-X (Version None)
Quarter: 2011Q1

REPORT INFORMATION
  Report Type: 
  Country: None (occurrence: None)
  Receive Date: 20110204
  Receipt Date: 20110126
  Transmission Date: 20110831
  Serious: Yes (Death)
  Sender: FDA-Public Use
  Company Number: B0695800A

PATIENT
  Sex: Male

DRUGS (2)
  1. TAMIFLU [Concomitant]
     Indication: INFLUENZA
     Dates: start: 20110106, end: 20110115
  2. RELENZA [Suspect]
     Dosage: 600MG SINGLE DOSE
     Route: 042
     Dates: start: 20110115

REACTIONS (2)
  - CARDIAC FAILURE [None]
  - PNEUMOTHORAX [None]
